FAERS Safety Report 5638548-4 (Version None)
Quarter: 2008Q1

REPORT INFORMATION
  Report Type: 
  Country: None (occurrence: None)
  Receive Date: 20080226
  Receipt Date: 20070412
  Transmission Date: 20080703
  Serious: No
  Sender: FDA-Public Use
  Company Number: A0647014A

PATIENT

DRUGS (1)
  1. IMITREX [Suspect]
     Indication: DRUG USE FOR UNKNOWN INDICATION
     Dosage: 6MG UNKNOWN
     Route: 058

REACTIONS (1)
  - INTENTIONAL DRUG MISUSE [None]
